FAERS Safety Report 16633312 (Version 1)
Quarter: 2019Q3

REPORT INFORMATION
  Report Type: Spontaneous
  Country: US (occurrence: US)
  Receive Date: 20190613
  Receipt Date: 20190613
  Transmission Date: 20191004
  Serious: Yes (Hospitalization)
  Sender: FDA-Public Use
  Company Number: None

PATIENT
  Age: 52 Year
  Sex: Female

DRUGS (12)
  1. LEXAPRO TAB [Concomitant]
  2. LOSARTAN/HCT TAB [Concomitant]
  3. UCERIS TAB [Concomitant]
  4. COLESTIPOL TAB [Concomitant]
  5. NORETHINDRON TAB [Concomitant]
  6. ENBREL SRCK INJ [Concomitant]
  7. LEVBID TAB [Concomitant]
  8. SULFASALAZIN TAB [Concomitant]
     Active Substance: SULFASALAZINE
  9. SINGULAR TAB [Concomitant]
  10. SYNTHROID TAB [Concomitant]
  11. HUMIRA [Suspect]
     Active Substance: ADALIMUMAB
     Indication: RHEUMATOID ARTHRITIS
     Dosage: ?          OTHER DOSE:1 PEN;?
     Route: 058
     Dates: start: 20181225
  12. MESALAMINE TAB [Concomitant]

REACTIONS (1)
  - Rheumatoid arthritis [None]

NARRATIVE: CASE EVENT DATE: 20190528
